FAERS Safety Report 23983860 (Version 1)
Quarter: 2024Q2

REPORT INFORMATION
  Report Type: Spontaneous
  Country: US (occurrence: US)
  Receive Date: 20240618
  Receipt Date: 20240618
  Transmission Date: 20240716
  Serious: No
  Sender: FDA-Public Use
  Company Number: US-AUROBINDO-AUR-APL-2023-047902

PATIENT

DRUGS (1)
  1. TAMSULOSIN [Suspect]
     Active Substance: TAMSULOSIN
     Indication: Bladder disorder
     Dosage: UNK
     Route: 065

REACTIONS (4)
  - Cough [Unknown]
  - Dysphonia [Unknown]
  - Pharyngitis [Unknown]
  - Rhinorrhoea [Unknown]
